FAERS Safety Report 16378746 (Version 1)
Quarter: 2019Q2

REPORT INFORMATION
  Report Type: Spontaneous
  Country: ES (occurrence: ES)
  Receive Date: 20190531
  Receipt Date: 20190531
  Transmission Date: 20190711
  Serious: Yes (Hospitalization)
  Sender: FDA-Public Use
  Company Number: ES-JNJFOC-20190530467

PATIENT
  Age: 56 Year
  Sex: Male

DRUGS (1)
  1. IBRUTINIB [Suspect]
     Active Substance: IBRUTINIB
     Indication: CHRONIC LYMPHOCYTIC LEUKAEMIA
     Route: 048
     Dates: start: 20180516

REACTIONS (3)
  - Syncope [Recovered/Resolved]
  - Disorientation [Recovered/Resolved]
  - Subdural haematoma [Unknown]

NARRATIVE: CASE EVENT DATE: 20190209
